FAERS Safety Report 7730075-3 (Version None)
Quarter: 2011Q3

REPORT INFORMATION
  Report Type: 
  Country: None (occurrence: None)
  Receive Date: 20110906
  Receipt Date: 20110826
  Transmission Date: 20111222
  Serious: Yes (Other)
  Sender: FDA-Public Use
  Company Number: PHHY2011NL42411

PATIENT
  Sex: Male
  Weight: 90 kg

DRUGS (5)
  1. IPRATROPIUM BROMIDE AND ALBUTEROL SULFATE [Concomitant]
     Indication: CHRONIC OBSTRUCTIVE PULMONARY DISEASE
     Dosage: 4 DF, 1 U
     Dates: start: 20081027
  2. TOBI [Suspect]
     Indication: BRONCHIECTASIS
     Dosage: 300 MG, UNK
     Dates: start: 20081027, end: 20090922
  3. FLUTICASONE PROPIONATE [Concomitant]
     Dosage: 2 DF,  2 PUFFS
     Dates: start: 20030317
  4. AZITHROMYCIN [Concomitant]
     Dosage: 500 MG, FIRST DAY
  5. AZITHROMYCIN [Concomitant]
     Dosage: 250 MG, UNK
     Dates: start: 20081027, end: 20081101

REACTIONS (2)
  - CREATININE RENAL CLEARANCE DECREASED [None]
  - RENAL IMPAIRMENT [None]
